FAERS Safety Report 5626143-2 (Version None)
Quarter: 2008Q1

REPORT INFORMATION
  Report Type: 
  Country: None (occurrence: None)
  Receive Date: 20080211
  Receipt Date: 20080131
  Transmission Date: 20080703
  Serious: Yes (Hospitalization)
  Sender: FDA-Public Use
  Company Number: ES-JNJFOC-20080200034

PATIENT
  Age: 78 Year
  Sex: Female

DRUGS (3)
  1. DECITABINE (DECITABINE) LYOPHILIZED [Suspect]
     Indication: ACUTE MYELOID LEUKAEMIA
     Dosage: 20 MG/M2, INTRAVENOUS
     Route: 042
     Dates: start: 20071126, end: 20080118
  2. TRAMADOL HCL [Concomitant]
  3. ACETAMINOPHEN [Concomitant]

REACTIONS (4)
  - DEEP VEIN THROMBOSIS [None]
  - FACIAL PALSY [None]
  - PERIPHERAL ISCHAEMIA [None]
  - PULMONARY EMBOLISM [None]
